FAERS Safety Report 5023291-5 (Version None)
Quarter: 2006Q2

REPORT INFORMATION
  Report Type: 
  Country: None (occurrence: None)
  Receive Date: 20060605
  Receipt Date: 20060525
  Transmission Date: 20061013
  Serious: Yes (Other)
  Sender: FDA-Public Use
  Company Number: 2006-05-2076

PATIENT
  Age: 18 Year
  Sex: Male

DRUGS (2)
  1. INTERFERON ALFA-2B INJECTABLE (LIKE INTRON A) [Suspect]
     Indication: BONE DISORDER
     Dosage: 3 MIU QD SUBCUTANEOUS
     Route: 058
  2. CLODRONATE DISODIUM [Concomitant]

REACTIONS (4)
  - DRUG INEFFECTIVE [None]
  - HAEMOTHORAX [None]
  - LIVER DISORDER [None]
  - THROMBOCYTOPENIA [None]
